FAERS Safety Report 9240151 (Version 1)
Quarter: 2013Q2

REPORT INFORMATION
  Report Type: Spontaneous
  Country: US (occurrence: None)
  Receive Date: 20130418
  Receipt Date: 20130418
  Transmission Date: 20140414
  Serious: Yes (Other)
  Sender: FDA-Public Use
  Company Number: None

PATIENT
  Age: 28 Year
  Sex: Female
  Weight: 79.38 kg

DRUGS (9)
  1. THALOMID [Suspect]
     Indication: ENDOMETRIOSIS
     Route: 048
     Dates: start: 20061207, end: 20070213
  2. LISINOPRIL [Concomitant]
  3. LESSINA [Concomitant]
  4. TRAZADONE [Concomitant]
  5. PEPTO BISMOL [Concomitant]
  6. ALBUTERAL [Concomitant]
  7. TYLENOL [Concomitant]
  8. ERRIN [Concomitant]
  9. ADVAIR [Concomitant]

REACTIONS (4)
  - Nausea [None]
  - Vomiting [None]
  - Gallbladder pain [None]
  - Cholecystitis [None]
